FAERS Safety Report 5264366-5 (Version None)
Quarter: 2007Q1

REPORT INFORMATION
  Report Type: 
  Country: None (occurrence: None)
  Receive Date: 20061213
  Receipt Date: 20040218
  Transmission Date: 20070707
  Serious: Yes (Other)
  Sender: FDA-Public Use
  Company Number: 2004UW02571

PATIENT
  Age: 75 Year
  Sex: Female
  Weight: 61.234 kg

DRUGS (10)
  1. IRESSA [Suspect]
     Indication: NON-SMALL CELL LUNG CANCER
     Dosage: 250 MG PO
     Route: 048
     Dates: start: 20020901
  2. AREDIA [Concomitant]
  3. DIGITEK [Concomitant]
  4. SPIRONOLACTONE [Concomitant]
  5. SYNTHROID [Concomitant]
  6. ENALAPRIL MALEATE [Concomitant]
  7. . [Concomitant]
  8. DILTIAZEM [Concomitant]
  9. COZAAR [Concomitant]
  10. CALCIUM [Concomitant]

REACTIONS (2)
  - ALOPECIA [None]
  - HYPERGLYCAEMIA [None]
